FAERS Safety Report 8381897-X (Version None)
Quarter: 2012Q2

REPORT INFORMATION
  Report Type: 
  Country: None (occurrence: None)
  Receive Date: 20120523
  Receipt Date: 20120523
  Transmission Date: 20120825
  Serious: Yes (Hospitalization, Disabling, Other)
  Sender: FDA-Public Use
  Company Number: None

PATIENT
  Sex: Female
  Weight: 58.514 kg

DRUGS (2)
  1. ACTONEL [Suspect]
     Indication: OSTEOPENIA
     Dosage: (1) MONTHLY 250MGM ?? ORAL
     Route: 048
     Dates: start: 20081008, end: 20090308
  2. ACTONEL [Suspect]
     Indication: OSTEOPOROSIS
     Dosage: (1) MONTHLY 250MGM ?? ORAL
     Route: 048
     Dates: start: 20081008, end: 20090308

REACTIONS (9)
  - DEPRESSION [None]
  - HEAD INJURY [None]
  - FALL [None]
  - NEUROPATHY PERIPHERAL [None]
  - BALANCE DISORDER [None]
  - LIMB INJURY [None]
  - GAIT DISTURBANCE [None]
  - HYPOAESTHESIA [None]
  - ACTIVITIES OF DAILY LIVING IMPAIRED [None]
